FAERS Safety Report 9528256 (Version 2)
Quarter: 2013Q3

REPORT INFORMATION
  Report Type: Report from Study
  Country: CA (occurrence: CA)
  Receive Date: 20130917
  Receipt Date: 20130919
  Transmission Date: 20140515
  Serious: Yes (Other)
  Sender: FDA-Public Use
  Company Number: PHHY2013CA101914

PATIENT
  Age: 67 Year
  Sex: Female

DRUGS (4)
  1. CLOZARIL [Suspect]
     Indication: SCHIZOPHRENIA
     Dosage: 50 MG, UNK
     Route: 048
     Dates: start: 20130528
  2. DIVALPROEX [Concomitant]
     Dosage: UNK
  3. SEROQUEL [Concomitant]
     Dosage: UNK
  4. HALDOL [Concomitant]
     Dosage: UNK

REACTIONS (8)
  - Normochromic normocytic anaemia [Not Recovered/Not Resolved]
  - Red blood cell rouleaux formation present [Not Recovered/Not Resolved]
  - Renal impairment [Not Recovered/Not Resolved]
  - Dehydration [Unknown]
  - Urine output decreased [Unknown]
  - Lethargy [Unknown]
  - Infection [Unknown]
  - Pyrexia [Unknown]
